FAERS Safety Report 23262508 (Version 5)
Quarter: 2024Q2

REPORT INFORMATION
  Report Type: Spontaneous
  Country: US (occurrence: US)
  Receive Date: 20231205
  Receipt Date: 20240620
  Transmission Date: 20240716
  Serious: Yes (Hospitalization, Other)
  Sender: FDA-Public Use
  Company Number: US-PFIZER INC-202300422363

PATIENT
  Age: 7 Year
  Sex: Male

DRUGS (1)
  1. OXBRYTA [Suspect]
     Active Substance: VOXELOTOR
     Dosage: 3 TABLETS FOR ORAL SUSPENSION ONCE DAILY
     Route: 048
     Dates: start: 20230209

REACTIONS (4)
  - Sickle cell anaemia with crisis [Unknown]
  - Drug effect less than expected [Unknown]
  - Back pain [Unknown]
  - Product use issue [Unknown]
